FAERS Safety Report 4293340-0 (Version None)
Quarter: 2004Q1

REPORT INFORMATION
  Report Type: 
  Country: None (occurrence: None)
  Receive Date: 20040210
  Receipt Date: 20040129
  Transmission Date: 20041129
  Serious: Yes (Hospitalization)
  Sender: FDA-Public Use
  Company Number: 2004-112441-NL

PATIENT
  Age: 24 Year
  Sex: Female
  Weight: 56.8 kg

DRUGS (1)
  1. NUVARING [Suspect]
     Indication: CONTRACEPTION
     Dosage: 1 DF 4WEEKLY VAGINAL
     Route: 067
     Dates: start: 20040104, end: 20040104

REACTIONS (11)
  - ABDOMINAL PAIN [None]
  - ABORTION SPONTANEOUS [None]
  - COMPLICATIONS OF MATERNAL EXPOSURE TO THERAPEUTIC DRUGS [None]
  - CONTRACEPTION [None]
  - DIFFICULTY IN WALKING [None]
  - FALLOPIAN TUBE DISORDER [None]
  - FEELING ABNORMAL [None]
  - HAEMORRHAGE [None]
  - MATERNAL DRUGS AFFECTING FOETUS [None]
  - POST PROCEDURAL HAEMORRHAGE [None]
  - PREGNANCY [None]
